FAERS Safety Report 19398556 (Version 1)
Quarter: 2021Q2

REPORT INFORMATION
  Report Type: Spontaneous
  Country: US (occurrence: US)
  Receive Date: 20210609
  Receipt Date: 20210609
  Transmission Date: 20210717
  Serious: No
  Sender: FDA-Public Use
  Company Number: None

PATIENT
  Age: 10 Year
  Sex: Female
  Weight: 36.1 kg

DRUGS (4)
  1. PREDNISONE. [Concomitant]
     Active Substance: PREDNISONE
     Dates: start: 20210313, end: 20210406
  2. VORETIGENE NEPARVOVEC?RZYL [Suspect]
     Active Substance: VORETIGENE NEPARVOVEC-RZYL
     Dosage: ?          OTHER ROUTE:SUBRETINAL INJECTION?
     Dates: start: 20210316, end: 20210323
  3. MAXITROL [Concomitant]
     Active Substance: DEXAMETHASONE\NEOMYCIN SULFATE\POLYMYXIN B SULFATE
     Dates: start: 20210317, end: 20210428
  4. ATROPINE. [Concomitant]
     Active Substance: ATROPINE
     Dates: start: 20210317, end: 20210331

REACTIONS (1)
  - Intraocular pressure increased [None]

NARRATIVE: CASE EVENT DATE: 20210331
